FAERS Safety Report 20080432 (Version 2)
Quarter: 2022Q1

REPORT INFORMATION
  Report Type: Spontaneous
  Country: DE (occurrence: DE)
  Receive Date: 20211117
  Receipt Date: 20220225
  Transmission Date: 20220424
  Serious: Yes (Other)
  Sender: FDA-Public Use
  Company Number: DE-NOVARTISPH-NVSC2021DE258111

PATIENT
  Age: 69 Year
  Sex: Female

DRUGS (4)
  1. DOCETAXEL [Suspect]
     Active Substance: DOCETAXEL
     Indication: Product used for unknown indication
     Dosage: 75 MG/M2, QD  (6 CYCLES DOCETAXEL 75 MG/M2)
     Route: 065
     Dates: start: 20190704, end: 20191017
  2. DOCETAXEL [Suspect]
     Active Substance: DOCETAXEL
     Dosage: 75 MG/M2, QD
     Route: 065
     Dates: start: 20210204, end: 20210225
  3. NINTEDANIB [Suspect]
     Active Substance: NINTEDANIB
     Indication: Adenocarcinoma
     Dosage: 150 MG, Q12H
     Route: 065
     Dates: start: 20190906, end: 20210204
  4. NINTEDANIB [Suspect]
     Active Substance: NINTEDANIB
     Dosage: 200 MG, Q12H
     Route: 065
     Dates: start: 20190705, end: 20190904

REACTIONS (5)
  - Metastases to lung [Unknown]
  - Metastases to liver [Unknown]
  - Metastases to lymph nodes [Unknown]
  - Diarrhoea [Unknown]
  - Nausea [Unknown]

NARRATIVE: CASE EVENT DATE: 20210204
